FAERS Safety Report 9457386 (Version 1)
Quarter: 2013Q3

REPORT INFORMATION
  Report Type: Spontaneous
  Country: GB (occurrence: None)
  Receive Date: 20130812
  Receipt Date: 20130812
  Transmission Date: 20140515
  Serious: Yes (Other)
  Sender: FDA-Public Use
  Company Number: AUR-APL-2013-06448

PATIENT
  Age: 47 Year
  Sex: Female
  Weight: 125 kg

DRUGS (2)
  1. RAMIPRIL [Suspect]
     Indication: PRODUCT USED FOR UNKNOWN INDICATION
  2. NORIDAY (EUGYNON/ 00022701/) [Concomitant]

REACTIONS (2)
  - Muscle spasms [None]
  - Angioedema [None]
